FAERS Safety Report 4441172-2 (Version None)
Quarter: 2004Q3

REPORT INFORMATION
  Report Type: 
  Country: None (occurrence: None)
  Receive Date: 20040728
  Receipt Date: 20040402
  Transmission Date: 20050211
  Serious: No
  Sender: FDA-Public Use
  Company Number: USA040463945

PATIENT
  Age: 11 Year
  Sex: Female

DRUGS (3)
  1. STRATTERA [Suspect]
     Indication: DISTURBANCE IN ATTENTION
     Dosage: 25 MG IN THE EVENING
     Dates: start: 20040320
  2. STRATTERA [Suspect]
     Indication: IMPULSIVE BEHAVIOUR
     Dosage: 25 MG IN THE EVENING
     Dates: start: 20040320
  3. STRATTERA [Suspect]
     Indication: INSOMNIA
     Dosage: 25 MG IN THE EVENING
     Dates: start: 20040320

REACTIONS (3)
  - ANXIETY [None]
  - INSOMNIA [None]
  - PANIC REACTION [None]
